FAERS Safety Report 15216705 (Version 2)
Quarter: 2018Q3

REPORT INFORMATION
  Report Type: Report from Study
  Country: US (occurrence: US)
  Receive Date: 20180730
  Receipt Date: 20180807
  Transmission Date: 20181010
  Serious: No
  Sender: FDA-Public Use
  Company Number: US-GILEAD-2018-0350949

PATIENT
  Age: 13 Year
  Sex: Male
  Weight: 30 kg

DRUGS (15)
  1. AMBRISENTAN [Suspect]
     Active Substance: AMBRISENTAN
     Indication: PULMONARY HYPERTENSION
     Dosage: 5 MG, QD
     Route: 065
     Dates: start: 20180518
  2. SYMBICORT [Concomitant]
     Active Substance: BUDESONIDE\FORMOTEROL FUMARATE DIHYDRATE
  3. KCL [Concomitant]
     Active Substance: POTASSIUM CHLORIDE
  4. ALBUTEROL                          /00139501/ [Concomitant]
     Active Substance: ALBUTEROL
  5. LORAZEPAM. [Concomitant]
     Active Substance: LORAZEPAM
  6. MELATONIN [Concomitant]
     Active Substance: MELATONIN
  7. RIFAMPIN. [Concomitant]
     Active Substance: RIFAMPIN
  8. BACLOFEN. [Concomitant]
     Active Substance: BACLOFEN
  9. SPIRONOLACTONE. [Concomitant]
     Active Substance: SPIRONOLACTONE
  10. AMBRISENTAN [Suspect]
     Active Substance: AMBRISENTAN
     Indication: BRONCHOPULMONARY DYSPLASIA
  11. RANITIDINE. [Concomitant]
     Active Substance: RANITIDINE
  12. FUROSEMIDE. [Concomitant]
     Active Substance: FUROSEMIDE
  13. REMODULIN [Concomitant]
     Active Substance: TREPROSTINIL
  14. LINEZOLID. [Concomitant]
     Active Substance: LINEZOLID
  15. MIRALAX [Concomitant]
     Active Substance: POLYETHYLENE GLYCOL 3350

REACTIONS (1)
  - Off label use [Not Recovered/Not Resolved]
